FAERS Safety Report 24785981 (Version 1)
Quarter: 2024Q4

REPORT INFORMATION
  Report Type: Other
  Country: FR (occurrence: FR)
  Receive Date: 20241229
  Receipt Date: 20241229
  Transmission Date: 20250115
  Serious: Yes (Life-Threatening, Other)
  Sender: DENTSPLY
  Company Number: FR-DENTSPLY-2024SCDP000367

PATIENT
  Age: 37 Year
  Sex: Male
  Weight: 50 kg

DRUGS (2)
  1. MEPIVACAINE HYDROCHLORIDE [Suspect]
     Active Substance: MEPIVACAINE HYDROCHLORIDE
     Indication: Surgery
     Dosage: 15 MILLILITER TOTAL MEPIVACAINE B. BRAUN 2% SOLUTION FOR INJECTION
     Route: 053
     Dates: start: 20241207, end: 20241207
  2. CLONIDINE [Concomitant]
     Active Substance: CLONIDINE
     Indication: Product used for unknown indication
     Dosage: UNK

REACTIONS (1)
  - Coma [None]

NARRATIVE: CASE EVENT DATE: 20241207
